FAERS Safety Report 6129977-3 (Version None)
Quarter: 2009Q1

REPORT INFORMATION
  Report Type: 
  Country: None (occurrence: None)
  Receive Date: 20090324
  Receipt Date: 20090313
  Transmission Date: 20090719
  Serious: Yes (Hospitalization, Other)
  Sender: FDA-Public Use
  Company Number: JP-MERCK-0903USA00143

PATIENT
  Age: 25 Year
  Sex: Female

DRUGS (2)
  1. DECADERM [Suspect]
     Indication: CONJUNCTIVITIS
     Route: 061
     Dates: start: 20070201
  2. DECADERM [Suspect]
     Route: 061
     Dates: start: 20030301

REACTIONS (6)
  - BLINDNESS [None]
  - EYE INFLAMMATION [None]
  - EYE IRRITATION [None]
  - GLAUCOMA [None]
  - GLAUCOMATOUS OPTIC DISC ATROPHY [None]
  - VISUAL ACUITY REDUCED [None]
